FAERS Safety Report 24276527 (Version 3)
Quarter: 2025Q1

REPORT INFORMATION
  Report Type: Spontaneous
  Country: DE (occurrence: DE)
  Receive Date: 20240903
  Receipt Date: 20250220
  Transmission Date: 20250408
  Serious: Yes (Life-Threatening, Other)
  Sender: RANBAXY
  Company Number: DE-EMA-DD-20240618-7482827-070922

PATIENT
  Sex: Female
  Weight: 71.2 kg

DRUGS (7)
  1. OLANZAPINE [Suspect]
     Active Substance: OLANZAPINE
     Indication: Product used for unknown indication
     Route: 065
  2. PERAZINE [Suspect]
     Active Substance: PERAZINE
     Indication: Product used for unknown indication
     Dosage: 1-0-1
     Route: 065
  3. HALOPERIDOL [Suspect]
     Active Substance: HALOPERIDOL
     Indication: Product used for unknown indication
     Route: 065
  4. LORAZEPAM [Suspect]
     Active Substance: LORAZEPAM
     Indication: Product used for unknown indication
     Route: 065
     Dates: start: 2019
  5. AKINETON [Suspect]
     Active Substance: BIPERIDEN HYDROCHLORIDE
     Indication: Product used for unknown indication
     Route: 048
  6. Promethazin 50mg [Concomitant]
     Indication: Restlessness
     Dosage: 0-1-1
     Route: 048
     Dates: start: 2023
  7. Baldrian Kneipp [Concomitant]
     Indication: Product used for unknown indication
     Route: 065

REACTIONS (5)
  - Oculogyric crisis [Not Recovered/Not Resolved]
  - Petit mal epilepsy [Unknown]
  - Weight increased [Unknown]
  - Vomiting [Unknown]
  - Epilepsy [Unknown]
